FAERS Safety Report 8429266-8 (Version None)
Quarter: 2012Q2

REPORT INFORMATION
  Report Type: 
  Country: None (occurrence: None)
  Receive Date: 20120612
  Receipt Date: 20120608
  Transmission Date: 20120825
  Serious: Yes (Other)
  Sender: FDA-Public Use
  Company Number: PHEH2012US008475

PATIENT
  Sex: Male

DRUGS (1)
  1. SANDOSTATIN LAR [Suspect]
     Dosage: 30 MG, QMO
     Route: 030

REACTIONS (6)
  - BRAIN NEOPLASM [None]
  - CARDIOMEGALY [None]
  - MALAISE [None]
  - DRUG INEFFECTIVE [None]
  - PARKINSON'S DISEASE [None]
  - AMNESIA [None]
